FAERS Safety Report 8779744 (Version 1)
Quarter: 2012Q4

REPORT INFORMATION
  Report Type: 
  Country: US (occurrence: US)
  Receive Date: 20120912
  Receipt Date: 20120912
  Transmission Date: 20130627
  Serious: No
  Sender: FDA-Public Use
  Company Number: US-TEVA-341669USA

PATIENT
  Sex: Female

DRUGS (1)
  1. QNASL [Suspect]
     Route: 045

REACTIONS (1)
  - Nasal discomfort [Unknown]
